FAERS Safety Report 21556931 (Version 1)
Quarter: 2022Q4

REPORT INFORMATION
  Report Type: Spontaneous
  Country: DE (occurrence: DE)
  Receive Date: 20221104
  Receipt Date: 20221104
  Transmission Date: 20230113
  Serious: Yes (Hospitalization)
  Sender: FDA-Public Use
  Company Number: DE-ADRED-05963-01

PATIENT
  Age: 95 Year
  Sex: Male

DRUGS (17)
  1. TORSEMIDE [Suspect]
     Active Substance: TORSEMIDE
     Indication: Product used for unknown indication
     Dosage: 5 MG, 0-1-1-0
     Route: 065
  2. PREDNISOLONE [Suspect]
     Active Substance: PREDNISOLONE
     Indication: Product used for unknown indication
     Dosage: 5 MG, 0-1-0-0
     Route: 065
  3. SODIUM PICOSULFATE [Suspect]
     Active Substance: SODIUM PICOSULFATE
     Indication: Product used for unknown indication
     Dosage: NEEDS, DROPS
     Route: 065
  4. MOVICOL [Suspect]
     Active Substance: POLYETHYLENE GLYCOL 3350\POTASSIUM CHLORIDE\SODIUM BICARBONATE\SODIUM CHLORIDE
     Indication: Product used for unknown indication
     Dosage: 3 TIMES A WEEK
     Route: 065
  5. ALBUTEROL [Concomitant]
     Active Substance: ALBUTEROL
     Dosage: DEMAND, METERED DOSE INHALER
     Route: 065
  6. LEVOTHYROXINUM NATRICUM [Concomitant]
     Dosage: 50 ?G, 0-1-0-0
     Route: 065
  7. GLYCOPYRRONIUM\INDACATEROL [Concomitant]
     Active Substance: GLYCOPYRRONIUM\INDACATEROL
     Dosage: 85|43 ?G, 0-1-0-0
     Route: 065
  8. SULTANOL [Concomitant]
     Active Substance: ALBUTEROL SULFATE
     Dosage: 5-0-5-0, DROPS
     Route: 065
  9. QUININE SULFATE [Concomitant]
     Active Substance: QUININE SULFATE
     Dosage: 200 MG, 0-0-0-1
     Route: 065
  10. AMLODIPINE BESYLATE [Concomitant]
     Active Substance: AMLODIPINE BESYLATE
     Dosage: 5 MG, 0-0.5-0-0
     Route: 065
  11. ATROVENT [Concomitant]
     Active Substance: IPRATROPIUM BROMIDE
     Dosage: 250 MCG/2ML, 1-0-1-0, SOLUTION FOR INHALATION
     Route: 065
  12. FLUPREDNIDENE ACETATE\MICONAZOLE NITRATE [Concomitant]
     Active Substance: FLUPREDNIDENE ACETATE\MICONAZOLE NITRATE
     Dosage: NEED, OINTMENT
     Route: 065
  13. OXYGEN [Concomitant]
     Active Substance: OXYGEN
     Dosage: 2 LITER, 1-1-1-1, INHALATION
     Route: 065
  14. FEBUXOSTAT [Concomitant]
     Active Substance: FEBUXOSTAT
     Dosage: 80 MG, 0-1-0-0
     Route: 065
  15. METAMIZOL [Concomitant]
     Active Substance: METAMIZOLE SODIUM
     Dosage: NEEDS DROPS
     Route: 065
  16. ASPIRIN [Concomitant]
     Active Substance: ASPIRIN
     Dosage: 100 MG, 0-1-0-0
     Route: 065
  17. FERROUS SULFATE [Concomitant]
     Active Substance: FERROUS SULFATE
     Dosage: 0-0-0-1, RETARD-TABLET
     Route: 065

REACTIONS (5)
  - General physical health deterioration [Unknown]
  - Tachycardia [Unknown]
  - Tachypnoea [Unknown]
  - Dehydration [Unknown]
  - Cachexia [Unknown]
